FAERS Safety Report 4643332-4 (Version None)
Quarter: 2005Q2

REPORT INFORMATION
  Report Type: 
  Country: None (occurrence: None)
  Receive Date: 20050421
  Receipt Date: 20050412
  Transmission Date: 20051028
  Serious: Yes (Other)
  Sender: FDA-Public Use
  Company Number: 2005058001

PATIENT
  Sex: Male

DRUGS (3)
  1. TIKOSYN [Suspect]
     Indication: ILL-DEFINED DISORDER
  2. LISINOPRIL [Suspect]
     Indication: ILL-DEFINED DISORDER
  3. WARFARIN SODIUM [Suspect]
     Indication: ILL-DEFINED DISORDER

REACTIONS (2)
  - BLOOD POTASSIUM INCREASED [None]
  - INTERNATIONAL NORMALISED RATIO DECREASED [None]
